FAERS Safety Report 10513716 (Version 2)
Quarter: 2014Q4

REPORT INFORMATION
  Report Type: Spontaneous
  Country: FR (occurrence: FR)
  Receive Date: 20141013
  Receipt Date: 20141027
  Transmission Date: 20150528
  Serious: Yes (Death, Other)
  Sender: FDA-Public Use
  Company Number: FR-009507513-1410FRA003719

PATIENT
  Sex: Female
  Weight: 78 kg

DRUGS (1)
  1. EMEND [Suspect]
     Active Substance: APREPITANT
     Indication: CHEMOTHERAPY

REACTIONS (1)
  - Neoplasm malignant [Fatal]
